FAERS Safety Report 7303571-0 (Version None)
Quarter: 2011Q1

REPORT INFORMATION
  Report Type: 
  Country: None (occurrence: None)
  Receive Date: 20110221
  Receipt Date: 20110217
  Transmission Date: 20110831
  Serious: Yes (Life-Threatening, Other)
  Sender: FDA-Public Use
  Company Number: PHHY2011AU09274

PATIENT
  Sex: Female
  Weight: 81 kg

DRUGS (6)
  1. ACE INHIBITORS AND DIURETICS [Concomitant]
  2. BETALOC [Concomitant]
     Dosage: 50 MG, UNK
     Route: 048
     Dates: start: 20050101
  3. VITAMIN D [Concomitant]
  4. PREDNISONE [Concomitant]
     Dosage: 7 MG, UNK
     Route: 048
     Dates: start: 20090101
  5. CRESTOR [Concomitant]
     Dosage: 20 MG, UNK
     Route: 048
     Dates: start: 20050101
  6. ACLASTA [Suspect]
     Indication: OSTEOPOROSIS
     Dosage: 5 MG, UNK
     Dates: start: 20101223

REACTIONS (3)
  - RENAL TUBULAR NECROSIS [None]
  - URINE OUTPUT DECREASED [None]
  - RENAL FAILURE [None]
